FAERS Safety Report 5515891-0 (Version None)
Quarter: 2007Q4

REPORT INFORMATION
  Report Type: 
  Country: None (occurrence: None)
  Receive Date: 20071114
  Receipt Date: 20071105
  Transmission Date: 20080405
  Serious: Yes (Other)
  Sender: FDA-Public Use
  Company Number: FR-AVENTIS-200713527FR

PATIENT
  Age: 68 Year
  Sex: Female

DRUGS (9)
  1. AMARYL [Suspect]
     Route: 048
  2. ACTOS [Suspect]
     Route: 048
     Dates: start: 20060201
  3. GLUCOPHAGE [Suspect]
     Route: 048
  4. ZOCOR [Suspect]
     Route: 048
  5. ACUITEL                            /00810601/ [Suspect]
     Route: 048
  6. INDAPAMIDE [Suspect]
     Route: 048
  7. LIORESAL [Suspect]
     Route: 048
  8. MYOLASTAN [Suspect]
     Route: 048
  9. AMPECYCLAL [Suspect]
     Route: 048

REACTIONS (1)
  - PATHOLOGICAL FRACTURE [None]
